FAERS Safety Report 8821434 (Version 1)
Quarter: 2012Q4

REPORT INFORMATION
  Report Type: 
  Country: ZA (occurrence: ZA)
  Receive Date: 20121002
  Receipt Date: 20121002
  Transmission Date: 20130627
  Serious: Yes (Other)
  Sender: FDA-Public Use
  Company Number: ZA-ELI_LILLY_AND_COMPANY-ZA201209008244

PATIENT
  Sex: Female

DRUGS (5)
  1. HUMALOG 50% LISPRO, 50% NPL [Suspect]
     Indication: DIABETES MELLITUS
     Dosage: 30 u, tid
     Route: 058
     Dates: start: 201208
  2. GLUCOPHAGE [Concomitant]
     Indication: DIABETES MELLITUS
     Dosage: UNK, each evening
     Route: 048
  3. PREXUM [Concomitant]
     Indication: BLOOD PRESSURE
     Dosage: UNK, qd
     Route: 048
  4. RIDAQ [Concomitant]
     Indication: DIURETIC THERAPY
     Dosage: 12.5 DF, UNK
     Route: 048
  5. ECOTRIN [Concomitant]
     Indication: ANTICOAGULANT THERAPY
     Dosage: 81 mg, qd
     Route: 048

REACTIONS (1)
  - Loss of consciousness [Unknown]
